FAERS Safety Report 16269672 (Version 1)
Quarter: 2019Q2

REPORT INFORMATION
  Report Type: Spontaneous
  Country: US (occurrence: US)
  Receive Date: 20190503
  Receipt Date: 20190503
  Transmission Date: 20190711
  Serious: No
  Sender: FDA-Public Use
  Company Number: US-ASTRAZENECA-2019SE53859

PATIENT
  Sex: Female

DRUGS (1)
  1. SYMBICORT [Suspect]
     Active Substance: BUDESONIDE\FORMOTEROL FUMARATE DIHYDRATE
     Indication: ASTHMA
     Dosage: UNKNOWN UNKNOWN
     Route: 055

REACTIONS (7)
  - Hallucination [Unknown]
  - Irritability [Unknown]
  - Paranoia [Unknown]
  - Intentional product misuse [Unknown]
  - Product dose omission [Unknown]
  - Photopsia [Unknown]
  - Abnormal behaviour [Unknown]
